FAERS Safety Report 7068744-3 (Version None)
Quarter: 2010Q4

REPORT INFORMATION
  Report Type: 
  Country: None (occurrence: None)
  Receive Date: 20101028
  Receipt Date: 20101021
  Transmission Date: 20110411
  Serious: Yes (Hospitalization)
  Sender: FDA-Public Use
  Company Number: US-PFIZER INC-2010125633

PATIENT
  Sex: Female
  Weight: 54 kg

DRUGS (8)
  1. ZYVOX [Suspect]
     Indication: ABDOMINAL DISCOMFORT
     Dosage: 600 MG, DAILY
     Route: 048
     Dates: start: 20100929, end: 20100929
  2. KLONOPIN [Concomitant]
     Dosage: UNK, 3X/DAY
  3. PROZAC [Concomitant]
     Dosage: UNK, DAILY
  4. SYNTHROID [Concomitant]
     Dosage: UNK, DAILY
  5. ULTRAM [Concomitant]
     Dosage: UNK, AS NEEDED
  6. LIPITOR [Concomitant]
     Dosage: UNK
  7. TRAZODONE [Concomitant]
     Dosage: UNK
  8. RENOVA [Concomitant]
     Dosage: UNK

REACTIONS (4)
  - DIARRHOEA [None]
  - MALAISE [None]
  - PAIN [None]
  - VOMITING [None]
